FAERS Safety Report 4268829-0 (Version None)
Quarter: 2004Q1

REPORT INFORMATION
  Report Type: 
  Country: None (occurrence: None)
  Receive Date: 20040109
  Receipt Date: 20031231
  Transmission Date: 20041129
  Serious: Yes (Death, Hospitalization, Other)
  Sender: FDA-Public Use
  Company Number: SG-JNJFOC-20031200268

PATIENT
  Age: 69 Year
  Sex: Female

DRUGS (5)
  1. DOXORUBICIN HYDROCHLORIDE [Suspect]
     Indication: BREAST CANCER
     Dosage: 35 MG/M2, 1 IN 3 WEEK, INTRAVENOUS
     Route: 042
     Dates: start: 20031027, end: 20031027
  2. GEMZAR [Suspect]
     Indication: BREAST CANCER
     Dosage: 1200 MG/M2, 1 IN 3 WEEK, INTRAVENOUS
     Route: 042
     Dates: start: 20031027, end: 20031103
  3. VIOXX [Concomitant]
  4. L-THYROXINE SODIUM (LEVOTHYROXINE SODIUM) TABLETS [Concomitant]
  5. FLUVOXAMINE (FLUVOXAMINE) TABLETS [Concomitant]

REACTIONS (16)
  - BLOOD CALCIUM DECREASED [None]
  - BLOOD SODIUM DECREASED [None]
  - BREAST CANCER METASTATIC [None]
  - CIRCULATORY COLLAPSE [None]
  - DYSPNOEA [None]
  - FLUID OVERLOAD [None]
  - HYPOTENSION [None]
  - MUSCULOSKELETAL STIFFNESS [None]
  - ORTHOPNOEA [None]
  - PLEURAL EFFUSION [None]
  - RENAL FAILURE ACUTE [None]
  - RESPIRATORY DISORDER [None]
  - TETANY [None]
  - ULTRASOUND KIDNEY ABNORMAL [None]
  - WHEEZING [None]
  - WHITE BLOOD CELL COUNT INCREASED [None]
